FAERS Safety Report 8978492 (Version 1)
Quarter: 2012Q4

REPORT INFORMATION
  Report Type: 
  Country: FR (occurrence: FR)
  Receive Date: 20121221
  Receipt Date: 20121221
  Transmission Date: 20130627
  Serious: Yes (Hospitalization)
  Sender: FDA-Public Use
  Company Number: FR-JNJFOC-20121112332

PATIENT
  Sex: Female
  Weight: 86 kg

DRUGS (5)
  1. RISPERDAL CONSTA [Suspect]
     Indication: PRODUCT USED FOR UNKNOWN INDICATION
     Route: 030
     Dates: start: 20120429
  2. DEPAKOTE [Concomitant]
     Route: 048
     Dates: start: 20120615
  3. VALIUM [Concomitant]
     Dosage: 15 drops on morning and 30 on evening.
     Route: 048
  4. LEPTICUR [Concomitant]
     Route: 048
     Dates: start: 20120615
  5. LOXAPAC [Concomitant]
     Route: 048
     Dates: start: 20121024

REACTIONS (4)
  - Hospitalisation [Not Recovered/Not Resolved]
  - Inappropriate schedule of drug administration [Unknown]
  - Medication error [Unknown]
  - Agitation [Unknown]
